FAERS Safety Report 4302444-5 (Version None)
Quarter: 2004Q1

REPORT INFORMATION
  Report Type: 
  Country: None (occurrence: None)
  Receive Date: 20040220
  Receipt Date: 20040213
  Transmission Date: 20041129
  Serious: Yes (Other)
  Sender: FDA-Public Use
  Company Number: GB-JNJFOC-20040203149

PATIENT

DRUGS (3)
  1. REMICADE [Suspect]
     Dosage: 222 MG, INTRAVENOUS
     Route: 042
  2. REMICADE [Suspect]
  3. REMICADE [Suspect]

REACTIONS (3)
  - ABDOMINAL PAIN UPPER [None]
  - DYSPNOEA [None]
  - SOMNOLENCE [None]
